FAERS Safety Report 6971610-2 (Version None)
Quarter: 2010Q3

REPORT INFORMATION
  Report Type: 
  Country: None (occurrence: None)
  Receive Date: 20100908
  Receipt Date: 20100623
  Transmission Date: 20110219
  Serious: Yes (Other)
  Sender: FDA-Public Use
  Company Number: JP-PFIZER INC-2010110767

PATIENT
  Age: 65 Year
  Sex: Male

DRUGS (1)
  1. SEIBULE [Suspect]
     Dosage: TOTAL DAILY DOSE OF 50 MG
     Route: 048
     Dates: start: 20100325, end: 20100524

REACTIONS (1)
  - HEPATIC FUNCTION ABNORMAL [None]
